FAERS Safety Report 5086727-X (Version None)
Quarter: 2006Q3

REPORT INFORMATION
  Report Type: 
  Country: None (occurrence: None)
  Receive Date: 20060823
  Receipt Date: 20060817
  Transmission Date: 20061208
  Serious: Yes (Hospitalization)
  Sender: FDA-Public Use
  Company Number: US-JNJFOC-20060804141

PATIENT
  Sex: Female
  Weight: 62.6 kg

DRUGS (7)
  1. REMICADE [Suspect]
     Indication: CROHN'S DISEASE
     Dosage: DOSE: 4 VIALS.
     Route: 042
  2. POTASSIUM [Concomitant]
  3. FOLIC ACID [Concomitant]
  4. PREMARIN [Concomitant]
     Indication: HORMONE REPLACEMENT THERAPY
  5. PREDNISONE [Concomitant]
     Indication: CROHN'S DISEASE
  6. 6 MP [Concomitant]
     Indication: CROHN'S DISEASE
  7. PROTONIX [Concomitant]

REACTIONS (2)
  - BLOOD DISORDER [None]
  - INFLUENZA LIKE ILLNESS [None]
